FAERS Safety Report 9889857 (Version 4)
Quarter: 2014Q2

REPORT INFORMATION
  Report Type: Report from Study
  Country: NL (occurrence: NL)
  Receive Date: 20140212
  Receipt Date: 20140626
  Transmission Date: 20141212
  Serious: Yes (Hospitalization)
  Sender: FDA-Public Use
  Company Number: NL-BIOGENIDEC-2014BI009512

PATIENT
  Age: 56 Year
  Sex: Female
  Weight: 97 kg

DRUGS (7)
  1. AVONEX [Suspect]
     Indication: MULTIPLE SCLEROSIS
     Route: 030
     Dates: start: 20131121
  2. BLINDED THERAPY [Concomitant]
     Indication: MULTIPLE SCLEROSIS
     Route: 042
     Dates: start: 20131121
  3. PREDNISON [Concomitant]
     Indication: FIBROMYALGIA
     Route: 048
     Dates: start: 20130418
  4. OXAZEPAM [Concomitant]
     Indication: PAIN IN EXTREMITY
     Route: 048
     Dates: start: 20090710
  5. ZALDIAR [Concomitant]
     Indication: SCIATICA
     Dates: start: 20100530
  6. CALCI CHEW [Concomitant]
     Indication: OSTEOPENIA
     Dates: start: 20091203
  7. OMEPRAZOL [Concomitant]
     Indication: PROPHYLAXIS
     Dates: start: 20091203

REACTIONS (1)
  - Radicular syndrome [Not Recovered/Not Resolved]
